FAERS Safety Report 7971703-7 (Version None)
Quarter: 2011Q4

REPORT INFORMATION
  Report Type: 
  Country: None (occurrence: None)
  Receive Date: 20111212
  Receipt Date: 20111129
  Transmission Date: 20120403
  Serious: Yes (Life-Threatening)
  Sender: FDA-Public Use
  Company Number: DE-MYLANLABS-2011S1024488

PATIENT
  Age: 48 Year
  Sex: Male

DRUGS (2)
  1. FLUOXETINE [Suspect]
     Route: 048
     Dates: start: 20110521, end: 20110606
  2. FLUOXETINE [Suspect]
     Indication: PRODUCT USED FOR UNKNOWN INDICATION
     Route: 048
     Dates: start: 20110517, end: 20110521

REACTIONS (11)
  - RESTLESSNESS [None]
  - CARDIOVASCULAR DISORDER [None]
  - HYPOTONIA [None]
  - SOMNOLENCE [None]
  - BLOOD PRESSURE INCREASED [None]
  - MOOD SWINGS [None]
  - FATIGUE [None]
  - PALLOR [None]
  - SUICIDE ATTEMPT [None]
  - SUICIDAL IDEATION [None]
  - TENSION [None]
